FAERS Safety Report 6021355-0 (Version None)
Quarter: 2008Q4

REPORT INFORMATION
  Report Type: 
  Country: None (occurrence: None)
  Receive Date: 20081229
  Receipt Date: 20081216
  Transmission Date: 20090506
  Serious: Yes (Hospitalization)
  Sender: FDA-Public Use
  Company Number: B0536500A

PATIENT
  Age: 38 Year
  Sex: Female
  Weight: 47 kg

DRUGS (5)
  1. LAMICTAL [Suspect]
     Indication: DEPRESSION
     Dosage: 50MG PER DAY
     Route: 048
     Dates: start: 20050101, end: 20080907
  2. LEXOMIL [Concomitant]
     Dosage: 1MG PER DAY
     Route: 048
     Dates: start: 20030101
  3. VICTAN [Concomitant]
     Dosage: 5MG TWICE PER DAY
     Route: 048
     Dates: start: 20030101
  4. EFFEXOR [Concomitant]
     Dosage: 50MG TWICE PER DAY
     Route: 048
     Dates: start: 20050101
  5. LEVOTHYROX [Concomitant]
     Indication: THYROIDITIS
     Dosage: 100MCG PER DAY
     Route: 048
     Dates: start: 20080401

REACTIONS (8)
  - BLOOD CREATINE PHOSPHOKINASE INCREASED [None]
  - DRUG EXPOSURE DURING PREGNANCY [None]
  - LIVE BIRTH [None]
  - MUSCULAR WEAKNESS [None]
  - MYALGIA [None]
  - MYOSITIS [None]
  - PREMATURE LABOUR [None]
  - TRANSAMINASES INCREASED [None]
